FAERS Safety Report 5962394-5 (Version None)
Quarter: 2008Q4

REPORT INFORMATION
  Report Type: 
  Country: None (occurrence: None)
  Receive Date: 20081121
  Receipt Date: 20081111
  Transmission Date: 20090506
  Serious: Yes (Other)
  Sender: FDA-Public Use
  Company Number: US-PFIZER INC-2008082583

PATIENT
  Sex: Male

DRUGS (2)
  1. XALATAN [Suspect]
     Indication: PIGMENTARY GLAUCOMA
     Dates: start: 20010601
  2. BETAGAN [Concomitant]
     Indication: PIGMENTARY GLAUCOMA
     Dates: end: 20010601

REACTIONS (2)
  - DRUG INEFFECTIVE [None]
  - INTRAOCULAR PRESSURE INCREASED [None]
